FAERS Safety Report 6480303-X (Version None)
Quarter: 2009Q4

REPORT INFORMATION
  Report Type: 
  Country: None (occurrence: None)
  Receive Date: 20091208
  Receipt Date: 20091126
  Transmission Date: 20100525
  Serious: Yes (Hospitalization)
  Sender: FDA-Public Use
  Company Number: FR-ELI_LILLY_AND_COMPANY-FR200903007597

PATIENT
  Sex: Female

DRUGS (8)
  1. PROZAC [Suspect]
     Indication: DEPRESSION
     Dosage: 20 MG, DAILY (1/D)
     Route: 048
     Dates: start: 19880101, end: 20081113
  2. PROPOFAN [Concomitant]
     Dosage: 4 D/F, DAILY (1/D)
     Route: 048
     Dates: start: 20040101
  3. MOPRAL [Concomitant]
     Dosage: 10 MG, DAILY (1/D)
     Route: 048
     Dates: start: 20040101
  4. NOOTROPYL [Concomitant]
     Dosage: 1600 MG, DAILY (1/D)
     Route: 048
     Dates: start: 20040101
  5. NOCTRAN 10 [Concomitant]
     Dosage: 20 MG, DAILY (1/D)
     Route: 048
     Dates: start: 20040101
  6. ERCEFURYL [Concomitant]
     Dosage: 2 D/F, WEEKLY (1/W)
     Route: 048
     Dates: start: 20040101
  7. PIASCLEDINE                        /00809501/ [Concomitant]
     Dosage: 1 D/F, DAILY (1/D)
     Route: 048
     Dates: start: 20040101
  8. ASCORBIC ACID [Concomitant]
     Route: 048
     Dates: start: 20040101

REACTIONS (4)
  - CHEST PAIN [None]
  - FALL [None]
  - INTERSTITIAL LUNG DISEASE [None]
  - STAPHYLOCOCCAL BACTERAEMIA [None]
